FAERS Safety Report 9181330 (Version 6)
Quarter: 2014Q1

REPORT INFORMATION
  Report Type: Spontaneous
  Country: US (occurrence: US)
  Receive Date: 20130322
  Receipt Date: 20140211
  Transmission Date: 20141002
  Serious: Yes (Hospitalization, Other)
  Sender: FDA-Public Use
  Company Number: US-009507513-1303USA009709

PATIENT
  Sex: Female
  Weight: 77.55 kg

DRUGS (9)
  1. FOSAMAX [Suspect]
     Indication: OSTEOPOROSIS
     Dosage: 10 MG, QD
     Route: 048
     Dates: start: 199912
  2. FOSAMAX [Suspect]
     Dosage: 70 MG, QW
     Route: 048
     Dates: end: 2005
  3. CALCIUM (UNSPECIFIED) [Concomitant]
     Dosage: 630-1500 MG, QD
  4. CALCIUM (UNSPECIFIED) [Concomitant]
     Dosage: 600 MG, BID
  5. CALCIUM (UNSPECIFIED) [Concomitant]
     Dosage: 630 MG, QID
  6. VITAMIN D (UNSPECIFIED) [Concomitant]
     Dosage: 50000 IU, BIM
  7. VITAMIN D (UNSPECIFIED) [Concomitant]
     Dosage: 2000 MG, QD
  8. VITAMIN D (UNSPECIFIED) [Concomitant]
     Dosage: UNK DF, BID
  9. VITAMIN D (UNSPECIFIED) [Concomitant]
     Dosage: 1000 IU, UNK

REACTIONS (23)
  - Femur fracture [Recovered/Resolved]
  - Intramedullary rod insertion [Unknown]
  - Femur fracture [Recovering/Resolving]
  - Intramedullary rod insertion [Unknown]
  - Joint arthroplasty [Unknown]
  - Cataract [Unknown]
  - Cataract operation [Unknown]
  - Fracture delayed union [Unknown]
  - Foot fracture [Unknown]
  - Foot fracture [Unknown]
  - Diabetes mellitus [Unknown]
  - Asthma [Unknown]
  - Renal disorder [Unknown]
  - Spinal osteoarthritis [Unknown]
  - Osteopenia [Unknown]
  - Osteoarthritis [Unknown]
  - Chronic sinusitis [Not Recovered/Not Resolved]
  - Rhinitis [Not Recovered/Not Resolved]
  - Emphysema [Unknown]
  - Electrocardiogram ST-T change [Unknown]
  - Inappropriate schedule of drug administration [Unknown]
  - Diarrhoea [Recovering/Resolving]
  - Gastrooesophageal reflux disease [Unknown]
